FAERS Safety Report 10209738 (Version 2)
Quarter: 2014Q2

REPORT INFORMATION
  Report Type: Spontaneous
  Country: US (occurrence: US)
  Receive Date: 20140602
  Receipt Date: 20140602
  Transmission Date: 20141212
  Serious: Yes (Hospitalization, Other)
  Sender: FDA-Public Use
  Company Number: US-AMGEN-USASP2014036820

PATIENT
  Age: 52 Year
  Sex: Female

DRUGS (2)
  1. ENBREL [Suspect]
     Indication: RHEUMATOID ARTHRITIS
     Dosage: 50 MG, QWK
     Route: 065
     Dates: start: 20140107, end: 20140513
  2. METHOTREXATE [Concomitant]
     Dosage: UNK MG, QWK
     Route: 048

REACTIONS (2)
  - Knee arthroplasty [Recovered/Resolved]
  - Procedural pain [Not Recovered/Not Resolved]
